FAERS Safety Report 10133236 (Version 1)
Quarter: 2014Q2

REPORT INFORMATION
  Report Type: Spontaneous
  Country: US (occurrence: US)
  Receive Date: 20140428
  Receipt Date: 20140428
  Transmission Date: 20141212
  Serious: No
  Sender: FDA-Public Use
  Company Number: US-PFIZER INC-2014116530

PATIENT
  Age: 65 Year
  Sex: Male
  Weight: 65.76 kg

DRUGS (2)
  1. LYRICA [Suspect]
     Indication: NEURALGIA
     Dosage: 75 MG, 3X/DAY
     Dates: start: 2010, end: 2010
  2. LYRICA [Suspect]
     Indication: OSTEOPOROSIS

REACTIONS (1)
  - Memory impairment [Unknown]
